FAERS Safety Report 6448867-X (Version None)
Quarter: 2009Q4

REPORT INFORMATION
  Report Type: 
  Country: None (occurrence: None)
  Receive Date: 20091120
  Receipt Date: 20091116
  Transmission Date: 20100525
  Serious: Yes (Death, Hospitalization)
  Sender: FDA-Public Use
  Company Number: IN-ELI_LILLY_AND_COMPANY-IN200908002836

PATIENT
  Age: 62 Year
  Sex: Male

DRUGS (1)
  1. XIGRIS [Suspect]
     Indication: MALARIA
     Dosage: UNK, UNKNOWN
     Route: 042
     Dates: start: 20090809, end: 20090812

REACTIONS (4)
  - ACUTE RESPIRATORY DISTRESS SYNDROME [None]
  - MALARIA [None]
  - OFF LABEL USE [None]
  - PULMONARY HAEMORRHAGE [None]
